FAERS Safety Report 14014903 (Version 1)
Quarter: 2017Q3

REPORT INFORMATION
  Report Type: Report from Study
  Country: None (occurrence: CA)
  Receive Date: 20170927
  Receipt Date: 20170927
  Transmission Date: 20171128
  Serious: Yes (Disabling)
  Sender: FDA-Public Use
  Company Number: CA-ABBVIE-17K-028-2005309-00

PATIENT
  Sex: Female

DRUGS (3)
  1. HUMIRA [Suspect]
     Active Substance: ADALIMUMAB
     Indication: ANKYLOSING SPONDYLITIS
     Route: 058
     Dates: start: 20161130
  2. DULOXETINE. [Suspect]
     Active Substance: DULOXETINE
     Indication: STRESS
  3. DULOXETINE. [Suspect]
     Active Substance: DULOXETINE
     Indication: PAIN
     Route: 048
     Dates: start: 2017, end: 2017

REACTIONS (5)
  - Stress [Not Recovered/Not Resolved]
  - Feeling abnormal [Recovered/Resolved]
  - Therapeutic response shortened [Unknown]
  - Back pain [Not Recovered/Not Resolved]
  - Self-injurious ideation [Unknown]

NARRATIVE: CASE EVENT DATE: 2017
